FAERS Safety Report 25415064 (Version 1)
Quarter: 2025Q2

REPORT INFORMATION
  Report Type: Spontaneous
  Country: JP (occurrence: JP)
  Receive Date: 20250609
  Receipt Date: 20250609
  Transmission Date: 20250716
  Serious: Yes (Hospitalization)
  Sender: PRINSTON PHARMACEUTICAL
  Company Number: JP-PRINSTON PHARMACEUTICAL INC.-2025PRN00189

PATIENT
  Age: 80 Year
  Sex: Male

DRUGS (1)
  1. DULOXETINE [Suspect]
     Active Substance: DULOXETINE
     Indication: Major depression
     Dosage: 20 MG, 1X/DAY

REACTIONS (1)
  - Febrile neutropenia [Recovered/Resolved]
